FAERS Safety Report 14914048 (Version 1)
Quarter: 2018Q2

REPORT INFORMATION
  Report Type: Spontaneous
  Country: GB (occurrence: GB)
  Receive Date: 20180518
  Receipt Date: 20180518
  Transmission Date: 20180711
  Serious: Yes (Other)
  Sender: FDA-Public Use
  Company Number: GB-PFIZER INC-2018195899

PATIENT
  Age: 69 Year
  Sex: Female
  Weight: 77 kg

DRUGS (14)
  1. FOSTAIR [Concomitant]
     Active Substance: BECLOMETHASONE\FORMOTEROL
     Dosage: 4 DF, DAILY (PUFFS)
     Dates: start: 20171227
  2. LOFEPRAMINE [Concomitant]
     Active Substance: LOFEPRAMINE
     Dosage: 2 DF, DAILY
     Dates: start: 20180326
  3. COCODAMOL [Concomitant]
     Active Substance: ACETAMINOPHEN\CODEINE PHOSPHATE
     Dosage: UNK, 4X/DAY (1 OR 2 FOUR TIMES DAILY)
     Dates: start: 20180315
  4. SALBUTAMOL [Concomitant]
     Active Substance: ALBUTEROL
     Dosage: UNK, TWO PUFFS FOUR TIMES DAILY OR AS REQUIRED
     Route: 055
     Dates: start: 20170831
  5. OMEPRAZOLE. [Concomitant]
     Active Substance: OMEPRAZOLE
     Dosage: 2 DF, DAILY
     Dates: start: 20170315
  6. RAMIPRIL. [Concomitant]
     Active Substance: RAMIPRIL
     Dosage: 1 DF, 1X/DAY
     Dates: start: 20170315
  7. METFORMIN [Concomitant]
     Active Substance: METFORMIN HYDROCHLORIDE
     Dosage: 4 DF, DAILY (MORNING AND NIGHT)
     Dates: start: 20170315
  8. FLUOXETINE [Concomitant]
     Active Substance: FLUOXETINE HYDROCHLORIDE
     Dosage: 2 DF, DAILY
     Dates: start: 20170315, end: 20171227
  9. CLENIL MODULITE [Concomitant]
     Active Substance: BECLOMETHASONE DIPROPIONATE
     Dosage: 4 DF, DAILY
     Route: 055
     Dates: start: 20170925, end: 20171227
  10. SERTRALINE HCL [Suspect]
     Active Substance: SERTRALINE HYDROCHLORIDE
     Dosage: 1 DF, 1X/DAY
     Dates: start: 20171227
  11. PRAVASTATIN. [Concomitant]
     Active Substance: PRAVASTATIN
     Dosage: 1 DF, 1X/DAY (AT NIGHT)
     Dates: start: 20170315
  12. AMOXICILLIN. [Concomitant]
     Active Substance: AMOXICILLIN
     Dosage: 3 DF, DAILY
     Dates: start: 20171227, end: 20180103
  13. CLOTRIMAZOLE. [Concomitant]
     Active Substance: CLOTRIMAZOLE
     Dosage: UNK, APPLY 2-3 TIMES/DAY
  14. PREDNISOLONE. [Concomitant]
     Active Substance: PREDNISOLONE
     Dosage: 8 DF, DAILY (8 IMMEDIATELY, THEN 8 EACH DAY)
     Dates: start: 20171227, end: 20180103

REACTIONS (3)
  - Swollen tongue [Unknown]
  - Abdominal pain [Unknown]
  - Dry mouth [Unknown]

NARRATIVE: CASE EVENT DATE: 20171227
